FAERS Safety Report 15281171 (Version 2)
Quarter: 2018Q4

REPORT INFORMATION
  Report Type: Spontaneous
  Country: US (occurrence: US)
  Receive Date: 20180815
  Receipt Date: 20180905
  Transmission Date: 20190204
  Serious: Yes (Other)
  Sender: FDA-Public Use
  Company Number: US-INDIVIOR LIMITED-INDV-113165-2018

PATIENT
  Age: 65 Year
  Sex: Female

DRUGS (5)
  1. SUBOXONE [Suspect]
     Active Substance: BUPRENORPHINE HYDROCHLORIDE\NALOXONE HYDROCHLORIDE
     Indication: DRUG DEPENDENCE
     Dosage: 8 MG, BID OR TID AS NEEDED (MORNING, MIDDAY AND IF PROBLEM, ONE AT BED TIME)
     Route: 002
  2. LYRICA [Concomitant]
     Active Substance: PREGABALIN
     Indication: PAIN
     Dosage: UNKNOWN
     Route: 065
  3. EFFEXOR [Concomitant]
     Active Substance: VENLAFAXINE HYDROCHLORIDE
     Indication: PRODUCT USED FOR UNKNOWN INDICATION
     Dosage: UNKNOWN
     Route: 065
  4. SUBOXONE [Suspect]
     Active Substance: BUPRENORPHINE HYDROCHLORIDE\NALOXONE HYDROCHLORIDE
     Dosage: 8 MG, BID OR TID AS NEEDED (MORNING, MIDDAY AND IF PROBLEM, ONE AT BED TIME)
     Route: 060
  5. WELLBUTRIN [Concomitant]
     Active Substance: BUPROPION HYDROCHLORIDE
     Indication: PRODUCT USED FOR UNKNOWN INDICATION
     Dosage: UNKNOWN
     Route: 065

REACTIONS (14)
  - Arthropathy [Unknown]
  - Ageusia [Unknown]
  - Tooth disorder [Not Recovered/Not Resolved]
  - Oral discomfort [Not Recovered/Not Resolved]
  - Tongue discomfort [Not Recovered/Not Resolved]
  - Inappropriate schedule of product administration [Not Recovered/Not Resolved]
  - Glossodynia [Not Recovered/Not Resolved]
  - Stomatitis [Not Recovered/Not Resolved]
  - Pain in extremity [Recovered/Resolved]
  - Back disorder [Unknown]
  - Glossitis [Not Recovered/Not Resolved]
  - Drug withdrawal syndrome [Recovered/Resolved]
  - Gastrointestinal disorder [Unknown]
  - Gingival recession [Not Recovered/Not Resolved]

NARRATIVE: CASE EVENT DATE: 2017
